FAERS Safety Report 13840843 (Version 2)
Quarter: 2017Q3

REPORT INFORMATION
  Report Type: Spontaneous
  Country: JP (occurrence: JP)
  Receive Date: 20170807
  Receipt Date: 20170922
  Transmission Date: 20171127
  Serious: Yes (Other)
  Sender: FDA-Public Use
  Company Number: JP-BAYER-2017-146876

PATIENT
  Age: 43 Year
  Sex: Female
  Weight: 70.3 kg

DRUGS (17)
  1. ADALAT-CR 10 MG [Concomitant]
     Indication: CARDIOPLEGIA
  2. BAYASPIRIN 100 MG [Suspect]
     Active Substance: ASPIRIN
     Indication: ANGINA PECTORIS
  3. PRASUGREL. [Suspect]
     Active Substance: PRASUGREL
     Indication: ANTIPLATELET THERAPY
     Dosage: DAILY DOSE 3.75 MG
     Route: 048
  4. TAKEPRON [Concomitant]
     Active Substance: LANSOPRAZOLE
     Indication: PROPHYLAXIS
     Dosage: DAILY 15MG
     Route: 048
  5. MICARDIS [Concomitant]
     Active Substance: TELMISARTAN
     Indication: PROPHYLAXIS
  6. ZETIA [Concomitant]
     Active Substance: EZETIMIBE
     Indication: HYPERLIPIDAEMIA
     Dosage: DAILY DOSE 10 MG
     Route: 048
  7. SIGMART [Concomitant]
     Active Substance: NICORANDIL
     Indication: CARDIOPLEGIA
     Dosage: DAILY 10MG
     Route: 048
  8. BAYASPIRIN 100 MG [Suspect]
     Active Substance: ASPIRIN
     Indication: ANTIPLATELET THERAPY
     Dosage: DAILY 100MG
     Route: 048
  9. MAINTATE [Concomitant]
     Active Substance: BISOPROLOL FUMARATE
     Indication: PROPHYLAXIS
  10. BAYASPIRIN 100 MG [Suspect]
     Active Substance: ASPIRIN
     Indication: CORONARY ANGIOPLASTY
  11. MICARDIS [Concomitant]
     Active Substance: TELMISARTAN
     Indication: HYPERTENSION
     Dosage: DAILY 20 MG
     Route: 048
  12. MICARDIS [Concomitant]
     Active Substance: TELMISARTAN
     Indication: CARDIOPLEGIA
  13. ADALAT-CR 10 MG [Concomitant]
     Indication: PROPHYLAXIS
  14. MAINTATE [Concomitant]
     Active Substance: BISOPROLOL FUMARATE
     Indication: HYPERTENSION
     Dosage: DAILY 2.5 MG
     Route: 048
  15. MAINTATE [Concomitant]
     Active Substance: BISOPROLOL FUMARATE
     Indication: CARDIOPLEGIA
  16. ADALAT-CR 10 MG [Concomitant]
     Indication: HYPERTENSION
     Dosage: DAILY 10 MG
     Route: 048
  17. LIVALO [Concomitant]
     Active Substance: PITAVASTATIN CALCIUM
     Indication: HYPERLIPIDAEMIA
     Dosage: DAILY 4MG
     Route: 048

REACTIONS (12)
  - Injection site swelling [None]
  - Injection site bruising [Recovered/Resolved]
  - Abdominal pain upper [Recovering/Resolving]
  - Oedema [Not Recovered/Not Resolved]
  - Hyperventilation [None]
  - Injection site pain [Recovering/Resolving]
  - Malaise [None]
  - Muscle spasms [None]
  - Muscle fatigue [Recovering/Resolving]
  - Asthenia [None]
  - Discomfort [None]
  - Weight increased [Not Recovered/Not Resolved]

NARRATIVE: CASE EVENT DATE: 20170616
